FAERS Safety Report 24924350 (Version 1)
Quarter: 2025Q1

REPORT INFORMATION
  Report Type: Report from Study
  Country: US (occurrence: US)
  Receive Date: 20250204
  Receipt Date: 20250204
  Transmission Date: 20250409
  Serious: Yes (Other)
  Sender: REGENERON
  Company Number: US-REGENERON PHARMACEUTICALS, INC.-2024-129492

PATIENT
  Sex: Male

DRUGS (1)
  1. CEMIPLIMAB [Suspect]
     Active Substance: CEMIPLIMAB
     Indication: Squamous cell carcinoma of skin
     Dosage: 350 MG, Q3W
     Route: 042
     Dates: start: 20240911, end: 20241125

REACTIONS (8)
  - Muscle spasms [Recovered/Resolved]
  - Insomnia [Recovered/Resolved]
  - Pain [Unknown]
  - Dizziness postural [Unknown]
  - Fatigue [Not Recovered/Not Resolved]
  - Localised oedema [Recovering/Resolving]
  - Pain in extremity [Recovered/Resolved]
  - Wound [Recovering/Resolving]

NARRATIVE: CASE EVENT DATE: 20240923
